FAERS Safety Report 10522695 (Version 4)
Quarter: 2015Q1

REPORT INFORMATION
  Report Type: Spontaneous
  Country: BR (occurrence: BR)
  Receive Date: 20141016
  Receipt Date: 20150108
  Transmission Date: 20150720
  Serious: Yes (Death, Hospitalization, Other)
  Sender: FDA-Public Use
  Company Number: BR-PFIZER INC-2013273518

PATIENT
  Age: 57 Year
  Sex: Male
  Weight: 105 kg

DRUGS (6)
  1. MACRODANTIN [Concomitant]
     Active Substance: NITROFURANTOIN
     Dosage: UNK
  2. COMBIRON [Concomitant]
     Active Substance: ASCORBIC ACID\FERROUS SULFATE\FOLIC ACID\PYRIDOXINE HYDROCHLORIDE\RIBOFLAVIN\THIAMINE MONONITRATE
     Dosage: UNK
  3. ATENOLOL. [Concomitant]
     Active Substance: ATENOLOL
     Dosage: ONE UNIT (50 MG), 1X/DAY, IN THE MORNING
  4. SUTENT [Suspect]
     Active Substance: SUNITINIB MALATE
     Indication: RENAL CELL CARCINOMA
     Dosage: 50 MG, CYCLIC (4 TO 2), 1X/DAY
     Route: 048
     Dates: start: 20130724, end: 20141001
  5. PROSTAT-HPB [Concomitant]
     Dosage: UNK
  6. ATENOLOL. [Concomitant]
     Active Substance: ATENOLOL
     Dosage: 100 MG, DAILY, AS NEEDED

REACTIONS (26)
  - Urinary tract infection [Unknown]
  - Feeding disorder [Not Recovered/Not Resolved]
  - Blood pressure increased [Unknown]
  - Disease progression [Fatal]
  - Anaemia [Not Recovered/Not Resolved]
  - Abnormal faeces [Unknown]
  - Skin irritation [Not Recovered/Not Resolved]
  - Somnolence [Unknown]
  - Dry skin [Recovering/Resolving]
  - Abdominal pain [Recovering/Resolving]
  - Swelling [Unknown]
  - Renal cell carcinoma [Fatal]
  - Pain in extremity [Not Recovered/Not Resolved]
  - Vomiting [Unknown]
  - Multi-organ failure [Fatal]
  - Skin atrophy [Recovering/Resolving]
  - Gait disturbance [Not Recovered/Not Resolved]
  - Hypoaesthesia [Unknown]
  - Anxiety [Not Recovered/Not Resolved]
  - Pain [Unknown]
  - Hair colour changes [Not Recovered/Not Resolved]
  - Pain in extremity [Unknown]
  - Skin exfoliation [Not Recovered/Not Resolved]
  - Palmar-plantar erythrodysaesthesia syndrome [Recovering/Resolving]
  - Back pain [Unknown]
  - Burning sensation [Unknown]

NARRATIVE: CASE EVENT DATE: 2013
